FAERS Safety Report 9298931 (Version 1)
Quarter: 2013Q2

REPORT INFORMATION
  Report Type: Spontaneous
  Country: US (occurrence: US)
  Receive Date: 20130520
  Receipt Date: 20130520
  Transmission Date: 20140414
  Serious: No
  Sender: FDA-Public Use
  Company Number: US-SANOFI-AVENTIS-2012SA083845

PATIENT
  Age: 22 Year
  Sex: Female
  Weight: 84 kg

DRUGS (3)
  1. APIDRA [Suspect]
     Indication: TYPE 1 DIABETES MELLITUS
     Route: 058
     Dates: start: 20121001, end: 20121012
  2. XANAX [Concomitant]
     Indication: ANXIETY
  3. VITAMIN D [Concomitant]

REACTIONS (3)
  - Malaise [Recovered/Resolved]
  - Hyperglycaemia [Recovered/Resolved]
  - Ketonuria [Recovered/Resolved]
